FAERS Safety Report 22594142 (Version 1)
Quarter: 2023Q2

REPORT INFORMATION
  Report Type: Spontaneous
  Country: GB (occurrence: GB)
  Receive Date: 20230613
  Receipt Date: 20230613
  Transmission Date: 20230721
  Serious: Yes (Hospitalization)
  Sender: FDA-Public Use
  Company Number: None

PATIENT
  Age: 71 Year
  Sex: Female

DRUGS (9)
  1. OMEPRAZOLE [Suspect]
     Active Substance: OMEPRAZOLE
     Indication: Gastrooesophageal reflux disease
     Dosage: DOESN^T TAKE OFTEN;
  2. FUROSEMIDE [Suspect]
     Active Substance: FUROSEMIDE
     Dosage: 2 OM - STOPPED O/A; ;
  3. LISINOPRIL [Suspect]
     Active Substance: LISINOPRIL
     Dosage: BID, DOSE REDUCED;
  4. ALLOPURINOL [Concomitant]
     Active Substance: ALLOPURINOL
     Dosage: 1 ON; ;
  5. CETIRIZINE [Concomitant]
     Active Substance: CETIRIZINE HYDROCHLORIDE
     Dosage: 1 OM; ;
  6. LEVOTHYROXINE SODIUM [Concomitant]
     Active Substance: LEVOTHYROXINE SODIUM
     Dosage: 1 OM; ;
  7. ALBUTEROL [Concomitant]
     Active Substance: ALBUTEROL
     Dosage: DOSE INHALER CFC FREE 1-2 PUFFS QDS PRN; ;
  8. SIMVASTATIN [Concomitant]
     Active Substance: SIMVASTATIN
     Dosage: 1 ON; ;
  9. PL 17901/0200 SYMBICORT TURBOHALER [Concomitant]
     Dosage: 200/6, 2 PUFFS BD; ;

REACTIONS (1)
  - Inappropriate antidiuretic hormone secretion [Recovered/Resolved]
